FAERS Safety Report 17580685 (Version 6)
Quarter: 2020Q2

REPORT INFORMATION
  Report Type: Spontaneous
  Country: US (occurrence: US)
  Receive Date: 20200325
  Receipt Date: 20200514
  Transmission Date: 20200713
  Serious: No
  Sender: FDA-Public Use
  Company Number: US-UNITED THERAPEUTICS-UNT-2020-004672

PATIENT
  Age: 58 Year
  Sex: Female
  Weight: 69.39 kg

DRUGS (7)
  1. REMODULIN [Suspect]
     Active Substance: TREPROSTINIL
     Indication: PULMONARY ARTERIAL HYPERTENSION
     Dosage: UNK, CONTINUING
     Route: 041
     Dates: start: 20200317
  2. REMODULIN [Suspect]
     Active Substance: TREPROSTINIL
     Dosage: 0.016 ?G/KG, CONTINUING
     Route: 041
  3. REMODULIN [Suspect]
     Active Substance: TREPROSTINIL
     Dosage: UNK, CONTINUING
     Route: 041
     Dates: start: 20200401
  4. REMODULIN [Suspect]
     Active Substance: TREPROSTINIL
     Dosage: 0.026 ?G/KG, CONTINUING (AT RATE OF 43 ML/24 HR)
     Route: 041
  5. WARFARIN [Concomitant]
     Active Substance: WARFARIN
     Indication: PRODUCT USED FOR UNKNOWN INDICATION
     Dosage: UNK
     Route: 065
  6. REMODULIN [Suspect]
     Active Substance: TREPROSTINIL
     Dosage: 0.060 ?G/KG, CONTINUING (AT RATE OF 100 ML/24 HR)
     Route: 041
  7. OPSUMIT [Concomitant]
     Active Substance: MACITENTAN
     Indication: PRODUCT USED FOR UNKNOWN INDICATION
     Dosage: UNK
     Route: 065

REACTIONS (20)
  - Dizziness [Unknown]
  - Influenza like illness [Unknown]
  - Device programming error [Unknown]
  - Overdose [Unknown]
  - Panic attack [Unknown]
  - Depression [Unknown]
  - Night sweats [Unknown]
  - Restless legs syndrome [Unknown]
  - Heart rate increased [Unknown]
  - Feeling abnormal [Unknown]
  - Dyspnoea [Unknown]
  - Anxiety [Unknown]
  - Headache [Not Recovered/Not Resolved]
  - Pain in jaw [Unknown]
  - Insomnia [Not Recovered/Not Resolved]
  - Pyrexia [Unknown]
  - Cough [Unknown]
  - Cold sweat [Recovering/Resolving]
  - Incorrect drug administration rate [Unknown]
  - Pain [Unknown]

NARRATIVE: CASE EVENT DATE: 202003
